FAERS Safety Report 10157414 (Version 1)
Quarter: 2014Q2

REPORT INFORMATION
  Report Type: Spontaneous
  Country: GB (occurrence: GB)
  Receive Date: 20140507
  Receipt Date: 20140507
  Transmission Date: 20141212
  Serious: Yes (Death, Hospitalization)
  Sender: FDA-Public Use
  Company Number: GB-PFIZER INC-2014122488

PATIENT
  Sex: Female

DRUGS (1)
  1. AXITINIB [Suspect]
     Dosage: UNK

REACTIONS (1)
  - Renal failure [Fatal]
